FAERS Safety Report 8817111 (Version 1)
Quarter: 2012Q4

REPORT INFORMATION
  Report Type: Spontaneous
  Country: US (occurrence: None)
  Receive Date: 20121003
  Receipt Date: 20121003
  Transmission Date: 20130627
  Serious: Yes (Death)
  Sender: FDA-Public Use
  Company Number: None

PATIENT
  Age: 26 Year
  Sex: Female

DRUGS (16)
  1. CELEXA [Suspect]
     Indication: BIPOLAR DISORDER
     Dosage: prior to admission, ongoin
     Route: 048
  2. ZITHROMAX [Suspect]
     Indication: UPPER RESPIRATORY INFECTION
     Dosage: 1 dose
     Route: 048
  3. CITALOPRAM [Concomitant]
  4. AMANTADINE [Concomitant]
  5. SEROQUEL XR [Concomitant]
  6. AZITHROMYCIN [Concomitant]
  7. ABILIFY [Concomitant]
  8. LAMICTAL [Concomitant]
  9. WELLBUTRIN [Concomitant]
  10. PROPRANOLOL [Concomitant]
  11. CONCERTA [Concomitant]
  12. KEPPRA [Concomitant]
  13. QUAIFENESIN [Concomitant]
  14. SUDAFED [Concomitant]
  15. BENADRYL [Concomitant]
  16. DEXTROMETHORPHAN [Concomitant]

REACTIONS (2)
  - Cardio-respiratory arrest [None]
  - Electrocardiogram QT prolonged [None]
